FAERS Safety Report 15271216 (Version 1)
Quarter: 2018Q3

REPORT INFORMATION
  Report Type: Spontaneous
  Country: HU (occurrence: HU)
  Receive Date: 20180813
  Receipt Date: 20180813
  Transmission Date: 20181010
  Serious: Yes (Hospitalization, Other)
  Sender: FDA-Public Use
  Company Number: HU-009507513-1808HUN002206

PATIENT
  Age: 64 Year
  Sex: Male

DRUGS (5)
  1. INTRON A [Suspect]
     Active Substance: INTERFERON ALFA-2B
     Dosage: 3X5 MIU OVER A WEEK (15 10E6 IU)
     Route: 058
     Dates: start: 20180410, end: 20180423
  2. INTRON A [Suspect]
     Active Substance: INTERFERON ALFA-2B
     Indication: MALIGNANT MELANOMA
     Dosage: 3X10 MIU OVER A WEEK (30 10E6IU)
     Route: 058
     Dates: start: 20171215, end: 20180410
  3. PANANGIN [Concomitant]
     Active Substance: MAGNESIUM ASPARTATE\POTASSIUM ASPARTATE
     Dosage: 1 DF, BID
     Route: 048
  4. CONCOR [Concomitant]
     Active Substance: BISOPROLOL FUMARATE
     Dosage: 5 MG, QD
     Route: 048
  5. RYTMONORM [Concomitant]
     Active Substance: PROPAFENONE
     Dosage: 150 MG, Q8H
     Route: 048

REACTIONS (8)
  - Chromaturia [Recovered/Resolved]
  - Diarrhoea [Recovered/Resolved]
  - Jaundice [Recovered/Resolved]
  - Hyperbilirubinaemia [Recovering/Resolving]
  - Hepatic steatosis [Unknown]
  - Chills [Recovered/Resolved]
  - Skin lesion [Recovered/Resolved]
  - Weight decreased [Recovered/Resolved]

NARRATIVE: CASE EVENT DATE: 2018
